FAERS Safety Report 4368773-4 (Version None)
Quarter: 2004Q2

REPORT INFORMATION
  Report Type: 
  Country: None (occurrence: None)
  Receive Date: 20040525
  Receipt Date: 20040512
  Transmission Date: 20050107
  Serious: No
  Sender: FDA-Public Use
  Company Number: 2004UW08844

PATIENT
  Sex: Female

DRUGS (5)
  1. SEROQUEL [Suspect]
     Indication: PSYCHOTIC DISORDER
     Dates: start: 20040401
  2. CLOZAPINE [Suspect]
     Dates: end: 20040423
  3. CELEBREX [Suspect]
  4. HALOPERIDOL [Concomitant]
  5. NOZINAN [Concomitant]

REACTIONS (1)
  - FULL BLOOD COUNT DECREASED [None]
